FAERS Safety Report 18409863 (Version 1)
Quarter: 2020Q4

REPORT INFORMATION
  Report Type: Other
  Country: SE (occurrence: SE)
  Receive Date: 20201021
  Receipt Date: 20201021
  Transmission Date: 20210114
  Serious: Yes (Hospitalization, Other)
  Sender: FDA-Public Use
  Company Number: SE-STRIDES ARCOLAB LIMITED-2020SP012412

PATIENT
  Age: 17 Year
  Sex: Female

DRUGS (2)
  1. IBUPROFEN. [Suspect]
     Active Substance: IBUPROFEN
     Indication: PRODUCT USED FOR UNKNOWN INDICATION
     Dosage: UNK
     Route: 065
  2. ALVEDON [Suspect]
     Active Substance: ACETAMINOPHEN
     Indication: PRODUCT USED FOR UNKNOWN INDICATION
     Dosage: UNK
     Route: 065

REACTIONS (22)
  - Oropharyngeal blistering [Unknown]
  - Stevens-Johnson syndrome [Unknown]
  - Vomiting [Unknown]
  - Blindness [Unknown]
  - Skin burning sensation [Unknown]
  - Pneumonia [Unknown]
  - Skin discolouration [Unknown]
  - Swelling face [Unknown]
  - Oxygen saturation decreased [Unknown]
  - Parosmia [Unknown]
  - Multiple organ dysfunction syndrome [Unknown]
  - Aphasia [Unknown]
  - Sepsis [Unknown]
  - Lip swelling [Unknown]
  - Pyrexia [Unknown]
  - Infection [Unknown]
  - Oral mucosal blistering [Unknown]
  - Toxic epidermal necrolysis [Unknown]
  - Condition aggravated [Unknown]
  - Alopecia [Unknown]
  - Pharyngeal haemorrhage [Unknown]
  - Eye swelling [Unknown]

NARRATIVE: CASE EVENT DATE: 202004
